FAERS Safety Report 6554393-X (Version None)
Quarter: 2010Q1

REPORT INFORMATION
  Report Type: 
  Country: None (occurrence: None)
  Receive Date: 20100125
  Receipt Date: 20100125
  Transmission Date: 20100710
  Serious: Yes (Hospitalization)
  Sender: FDA-Public Use
  Company Number: None

PATIENT
  Weight: 83.0083 kg

DRUGS (2)
  1. PLAVIX [Suspect]
     Dosage: 75 MG DAILY PO
     Route: 048
     Dates: start: 20081118, end: 20091027
  2. ASPIRIN [Suspect]
     Dosage: 325MG DAILY PO
     Route: 048

REACTIONS (3)
  - COUGH [None]
  - DYSPNOEA [None]
  - MYOCARDIAL INFARCTION [None]
